FAERS Safety Report 10206967 (Version 1)
Quarter: 2014Q2

REPORT INFORMATION
  Report Type: Spontaneous
  Country: US (occurrence: None)
  Receive Date: 20140527
  Receipt Date: 20140527
  Transmission Date: 20141212
  Serious: Yes (Other)
  Sender: FDA-Public Use
  Company Number: UNT-2014-000473

PATIENT
  Age: 68 Year
  Sex: Male
  Weight: 82.5 kg

DRUGS (4)
  1. REMODULIN [Suspect]
     Indication: PULMONARY ARTERIAL HYPERTENSION
     Dosage: 0.1 UG/KG, CONTINUING, IV DRIP
     Route: 041
     Dates: start: 20130821
  2. ADCIRCA (TADALAFIL) [Concomitant]
  3. COUMADIN (WARFARIN SODIUM) [Concomitant]
  4. OPSUMIT (MACITENTAN) [Concomitant]

REACTIONS (1)
  - Anaemia [None]
